FAERS Safety Report 22006010 (Version 1)
Quarter: 2023Q1

REPORT INFORMATION
  Report Type: Spontaneous
  Country: CN (occurrence: CN)
  Receive Date: 20230217
  Receipt Date: 20230217
  Transmission Date: 20230418
  Serious: Yes (Other)
  Sender: FDA-Public Use
  Company Number: CN-PFIZER INC-PV202300027157

PATIENT
  Age: 14 Year
  Sex: Male

DRUGS (4)
  1. TIGECYCLINE [Suspect]
     Active Substance: TIGECYCLINE
     Indication: Intracranial infection
     Dosage: 50 MG, 2X/DAY
     Route: 041
  2. TIGECYCLINE [Suspect]
     Active Substance: TIGECYCLINE
     Dosage: 2 MG, 2X/DAY(FOR MORE THAN 40 DAYS)
     Route: 037
  3. VANCOMYCIN [Concomitant]
     Active Substance: VANCOMYCIN
     Route: 041
  4. SODIUM CHLORIDE [Concomitant]
     Active Substance: SODIUM CHLORIDE
     Dosage: 2 MG, 2X/DAY(FOR MORE THAN 40 DAYS)
     Route: 037

REACTIONS (3)
  - Off label use [Recovered/Resolved]
  - Hydrocephalus [Recovered/Resolved]
  - Tremor [Recovered/Resolved]
